FAERS Safety Report 20409633 (Version 4)
Quarter: 2022Q1

REPORT INFORMATION
  Report Type: Spontaneous
  Country: JP (occurrence: JP)
  Receive Date: 20220201
  Receipt Date: 20220329
  Transmission Date: 20220423
  Serious: No
  Sender: FDA-Public Use
  Company Number: JP-GLAXOSMITHKLINE-JP2022JPN013403

PATIENT
  Sex: Female
  Weight: 58 kg

DRUGS (9)
  1. SOTROVIMAB [Suspect]
     Active Substance: SOTROVIMAB
     Indication: COVID-19
     Dosage: 500 MG/50 ML/30 MIN
     Dates: start: 20220123, end: 20220123
  2. DEXTROMETHORPHAN HYDROBROMIDE [Suspect]
     Active Substance: DEXTROMETHORPHAN HYDROBROMIDE
     Indication: Antitussive therapy
     Dosage: 60 MG PER DAY
     Dates: start: 20220124
  3. LOXOPROFEN SODIUM DIHYDRATE [Suspect]
     Active Substance: LOXOPROFEN SODIUM DIHYDRATE
     Indication: Antitussive therapy
     Dosage: 60 MG PER DAY
     Dates: start: 20220124, end: 20220131
  4. CODEINE PHOSPHATE [Suspect]
     Active Substance: CODEINE PHOSPHATE
     Indication: Antitussive therapy
     Dosage: 6 G PER DAY
     Dates: start: 20220124, end: 20220131
  5. MAGNESIUM OXIDE [Suspect]
     Active Substance: MAGNESIUM OXIDE
     Indication: Antitussive therapy
     Dosage: 990 MG PER DAY
     Dates: start: 20220125, end: 20220131
  6. METHYLERGONOVINE MALEATE [Suspect]
     Active Substance: METHYLERGONOVINE MALEATE
     Indication: Antitussive therapy
     Dosage: 0.375 MG PER DAY
     Dates: start: 20220125, end: 20220131
  7. FEXOFENADINE HYDROCHLORIDE [Suspect]
     Active Substance: FEXOFENADINE HYDROCHLORIDE
     Indication: Antitussive therapy
     Dosage: 120 MG PER DAY
     Dates: start: 20220127
  8. FERROUS SULFATE [Suspect]
     Active Substance: FERROUS SULFATE
     Indication: Antitussive therapy
     Dosage: 105 MG PER DAY
     Dates: start: 20220127
  9. CALONAL [Suspect]
     Active Substance: ACETAMINOPHEN
     Dosage: 200MG?2

REACTIONS (2)
  - Exposure during pregnancy [Unknown]
  - Live birth [Unknown]
